FAERS Safety Report 21125022 (Version 3)
Quarter: 2022Q4

REPORT INFORMATION
  Report Type: Spontaneous
  Country: TR (occurrence: TR)
  Receive Date: 20220725
  Receipt Date: 20221123
  Transmission Date: 20230112
  Serious: Yes (Death, Hospitalization, Other)
  Sender: FDA-Public Use
  Company Number: TR-SA-SAC20220721001938

PATIENT
  Age: 23 Year
  Sex: Male
  Weight: 60 kg

DRUGS (3)
  1. CEREZYME [Suspect]
     Active Substance: IMIGLUCERASE
     Indication: Gaucher^s disease
     Dosage: 11 DF, QOW
     Dates: start: 2012, end: 202205
  2. CEREZYME [Suspect]
     Active Substance: IMIGLUCERASE
     Dosage: 9 DF, QOW
  3. QUETIAPINE [Concomitant]
     Active Substance: QUETIAPINE
     Indication: Mental disorder
     Dosage: UNK
     Route: 048
     Dates: start: 202203, end: 20220712

REACTIONS (2)
  - Epilepsy [Fatal]
  - Weight decreased [Unknown]

NARRATIVE: CASE EVENT DATE: 20220712
